FAERS Safety Report 4415036-4 (Version None)
Quarter: 2004Q3

REPORT INFORMATION
  Report Type: 
  Country: None (occurrence: None)
  Receive Date: 20040729
  Receipt Date: 20040720
  Transmission Date: 20050211
  Serious: Yes (Other)
  Sender: FDA-Public Use
  Company Number: CIP04001562

PATIENT
  Age: 83 Year
  Sex: Female

DRUGS (4)
  1. ACTONEL [Suspect]
     Indication: OSTEOPOROSIS
     Dosage: 35 MG ONCE WEEKLY, ORAL
     Route: 048
     Dates: start: 20040701
  2. LASIX (SCH) (FUROSEMIDE, FUROSEMIDE SODIUM) [Concomitant]
  3. ACCUPRIL [Concomitant]
  4. POTASSIUM [Concomitant]

REACTIONS (3)
  - CARDIAC FAILURE CONGESTIVE [None]
  - CRACKLES LUNG [None]
  - WHEEZING [None]
